FAERS Safety Report 6924569-8 (Version None)
Quarter: 2010Q3

REPORT INFORMATION
  Report Type: 
  Country: None (occurrence: None)
  Receive Date: 20100816
  Receipt Date: 20100802
  Transmission Date: 20110219
  Serious: Yes (Hospitalization)
  Sender: FDA-Public Use
  Company Number: JP-JNJFOC-20090304902

PATIENT
  Sex: Female
  Weight: 44 kg

DRUGS (7)
  1. REMICADE [Suspect]
     Indication: CROHN'S DISEASE
     Route: 042
  2. REMICADE [Suspect]
     Route: 042
  3. REMICADE [Suspect]
     Route: 042
  4. REMICADE [Suspect]
     Route: 042
  5. REMICADE [Suspect]
     Route: 042
  6. REMICADE [Suspect]
     Route: 042
  7. STEROIDS [Concomitant]
     Route: 065

REACTIONS (4)
  - DRUG ERUPTION [None]
  - ECZEMA [None]
  - PYREXIA [None]
  - TYPE IV HYPERSENSITIVITY REACTION [None]
